FAERS Safety Report 8096877-1 (Version None)
Quarter: 2012Q1

REPORT INFORMATION
  Report Type: 
  Country: None (occurrence: None)
  Receive Date: 20120129
  Receipt Date: 20111205
  Transmission Date: 20120608
  Serious: No
  Sender: FDA-Public Use
  Company Number: US-ABBOTT-11P-163-0880723-00

PATIENT
  Age: 40 Year
  Sex: Female

DRUGS (12)
  1. PAMELOR [Concomitant]
     Indication: DEPRESSION
     Dosage: FOR 5 PLUS YEARS
  2. CELEXA [Concomitant]
     Indication: DEPRESSION
     Dosage: DAILY 5ML/10MG - FOR 4 MONTHS
  3. XANAX [Concomitant]
     Indication: PANIC ATTACK
  4. LIBRAX [Concomitant]
     Indication: IRRITABLE BOWEL SYNDROME
     Dosage: FOR 5 PLUS YEARS
  5. VITAMIN B-12 [Concomitant]
     Indication: VITAMIN SUPPLEMENTATION
     Dosage: FOR 5 YEARS
  6. ESTRADIOL [Concomitant]
     Indication: HORMONE REPLACEMENT THERAPY
     Dosage: DAILY FOR 10 PLUS YEARS
  7. PRILOSEC [Concomitant]
     Indication: GASTROOESOPHAGEAL REFLUX DISEASE
     Dosage: FOR 10 YEARS PLUS
  8. HUMIRA [Suspect]
     Indication: ANKYLOSING SPONDYLITIS
  9. ATENOLOL [Concomitant]
     Indication: HEART RATE IRREGULAR
     Dosage: DAILY FOR 10 PLUS YEARS
  10. TRAMADOL HCL [Concomitant]
     Indication: PAIN
     Dosage: DAILY
     Dates: start: 20110601
  11. VITAMIN D [Concomitant]
     Indication: VITAMIN SUPPLEMENTATION
     Dosage: FOR 1 YEAR
  12. XANAX [Concomitant]
     Indication: ANXIETY
     Dosage: FOR 2 YEARS

REACTIONS (3)
  - INJECTION SITE ERYTHEMA [None]
  - INJECTION SITE HAEMORRHAGE [None]
  - INJECTION SITE PAPULE [None]
